FAERS Safety Report 10533730 (Version 2)
Quarter: 2014Q4

REPORT INFORMATION
  Report Type: Report from Study
  Country: DE (occurrence: DE)
  Receive Date: 20141022
  Receipt Date: 20141114
  Transmission Date: 20150529
  Serious: Yes (Hospitalization, Other)
  Sender: FDA-Public Use
  Company Number: DE-JNJFOC-20141011183

PATIENT
  Age: 32 Year
  Sex: Male
  Weight: 72 kg

DRUGS (2)
  1. SIMPONI [Suspect]
     Active Substance: GOLIMUMAB
     Indication: COLITIS ULCERATIVE
     Route: 058
     Dates: start: 20140403, end: 20140615
  2. SIMPONI [Suspect]
     Active Substance: GOLIMUMAB
     Indication: COLITIS ULCERATIVE
     Route: 058

REACTIONS (4)
  - Colitis ulcerative [Unknown]
  - Volvulus of small bowel [Recovered/Resolved with Sequelae]
  - Staphylococcal infection [Unknown]
  - Postoperative ileus [Recovered/Resolved with Sequelae]

NARRATIVE: CASE EVENT DATE: 20140620
